FAERS Safety Report 8917654 (Version 2)
Quarter: 2013Q1

REPORT INFORMATION
  Report Type: Spontaneous
  Country: JP (occurrence: JP)
  Receive Date: 20121120
  Receipt Date: 20130204
  Transmission Date: 20140127
  Serious: Yes (Other)
  Sender: FDA-Public Use
  Company Number: JP-EISAI INC-E7389-03250-SPO-JP

PATIENT
  Age: 81 Year
  Sex: Female

DRUGS (8)
  1. HALAVEN [Suspect]
     Indication: BREAST CANCER RECURRENT
     Route: 041
     Dates: start: 20120326, end: 20121029
  2. WARFARIN [Concomitant]
     Indication: DEEP VEIN THROMBOSIS
     Route: 048
  3. WARFARIN [Concomitant]
     Route: 048
  4. SEIBULE [Concomitant]
     Indication: DIABETES MELLITUS
     Route: 048
  5. ADOFEED [Concomitant]
     Indication: CANCER PAIN
  6. AMARYL [Concomitant]
     Indication: DIABETES MELLITUS
     Route: 048
  7. NEUTROGIN [Concomitant]
     Indication: CANCER PAIN
     Route: 042
  8. METHYCOBAL [Concomitant]
     Indication: NEUROPATHY PERIPHERAL
     Route: 048

REACTIONS (1)
  - Interstitial lung disease [Recovering/Resolving]
